FAERS Safety Report 21296947 (Version 1)
Quarter: 2022Q3

REPORT INFORMATION
  Report Type: Spontaneous
  Country: US (occurrence: None)
  Receive Date: 20220904
  Receipt Date: 20220904
  Transmission Date: 20221027
  Serious: Yes (Other)
  Sender: FDA-Public Use
  Company Number: None

PATIENT
  Age: 68 Year
  Sex: Female
  Weight: 93.15 kg

DRUGS (20)
  1. PAXLOVID [Suspect]
     Active Substance: NIRMATRELVIR\RITONAVIR
     Indication: COVID-19
     Dosage: FREQUENCY : TWICE A DAY;?
     Route: 048
     Dates: start: 20220902
  2. Amlodipine Albuterol [Concomitant]
     Dates: start: 20170101
  3. FLONASE [Concomitant]
     Active Substance: FLUTICASONE PROPIONATE
     Dates: start: 20211001, end: 20220902
  4. SINGULAIR [Concomitant]
     Active Substance: MONTELUKAST SODIUM
     Dates: start: 20200101
  5. Calcium 600 mg [Concomitant]
     Dates: start: 20200101
  6. VITAMIN D3 [Concomitant]
     Active Substance: CHOLECALCIFEROL
     Dates: start: 20200101, end: 20220801
  7. Vitamin D-2 [Concomitant]
     Dates: start: 20220801
  8. LEVOTHYROXINE [Concomitant]
     Active Substance: LEVOTHYROXINE
     Dates: start: 19870101
  9. CLARITIN [Concomitant]
     Active Substance: LORATADINE
     Dates: start: 20200101
  10. LOSARTAN [Concomitant]
     Active Substance: LOSARTAN
     Dates: start: 20170101
  11. MELOXICAM [Concomitant]
     Active Substance: MELOXICAM
     Dates: start: 20220701
  12. Metaformin [Concomitant]
     Dates: start: 20220301
  13. POLYETHYLENE GLYCOL 3350 [Concomitant]
     Active Substance: POLYETHYLENE GLYCOL 3350
  14. PRAVASTATIN [Concomitant]
     Active Substance: PRAVASTATIN
     Dates: start: 20220401
  15. VENLAFAXINE [Concomitant]
     Active Substance: VENLAFAXINE HYDROCHLORIDE
     Dates: start: 20200101
  16. VITAMIN C [Concomitant]
     Active Substance: ASCORBIC ACID
     Dates: start: 202209
  17. ZINC [Concomitant]
     Active Substance: ZINC
     Dates: start: 202209
  18. VITAMINS [Concomitant]
     Active Substance: VITAMINS
     Dates: start: 20150101
  19. Alka seltzer Cold Remedy [Concomitant]
     Dates: start: 20220830, end: 20220903
  20. Benvonatate [Concomitant]
     Dates: start: 20220901

REACTIONS (1)
  - Dysgeusia [None]

NARRATIVE: CASE EVENT DATE: 20220902
